FAERS Safety Report 17944754 (Version 4)
Quarter: 2022Q4

REPORT INFORMATION
  Report Type: Spontaneous
  Country: US (occurrence: US)
  Receive Date: 20200625
  Receipt Date: 20221201
  Transmission Date: 20230113
  Serious: Yes (Other)
  Sender: FDA-Public Use
  Company Number: US-GILEAD-2020-0476198

PATIENT
  Age: 55 Year
  Sex: Female

DRUGS (3)
  1. TRUVADA [Suspect]
     Active Substance: EMTRICITABINE\TENOFOVIR DISOPROXIL FUMARATE
     Indication: HIV infection
     Dosage: UNK
     Route: 048
     Dates: start: 20090929, end: 20151109
  2. TRUVADA [Suspect]
     Active Substance: EMTRICITABINE\TENOFOVIR DISOPROXIL FUMARATE
     Dosage: UNK
     Route: 065
     Dates: start: 20090929, end: 20160224
  3. STRIBILD [Suspect]
     Active Substance: COBICISTAT\ELVITEGRAVIR\EMTRICITABINE\TENOFOVIR DISOPROXIL FUMARATE
     Indication: HIV infection
     Dosage: UNK
     Route: 065
     Dates: start: 20160229, end: 20160508

REACTIONS (7)
  - Chronic kidney disease [Unknown]
  - Osteoporosis [Not Recovered/Not Resolved]
  - Renal failure [Unknown]
  - Osteopenia [Not Recovered/Not Resolved]
  - Bone density decreased [Unknown]
  - Tooth disorder [Not Recovered/Not Resolved]
  - Tooth loss [Not Recovered/Not Resolved]

NARRATIVE: CASE EVENT DATE: 20130806
